FAERS Safety Report 21500405 (Version 11)
Quarter: 2022Q4

REPORT INFORMATION
  Report Type: Report from Study
  Country: GB (occurrence: GB)
  Receive Date: 20221025
  Receipt Date: 20221130
  Transmission Date: 20230112
  Serious: Yes (Congenital Anomaly, Other)
  Sender: FDA-Public Use
  Company Number: GB-GILEAD-2022-0601181

PATIENT
  Age: 6 Month
  Sex: Female
  Weight: 2.48 kg

DRUGS (22)
  1. RITONAVIR [Suspect]
     Active Substance: RITONAVIR
     Indication: HIV infection
     Dosage: 100 MILLIGRAM, QD
     Route: 064
     Dates: start: 20211229
  2. RITONAVIR [Suspect]
     Active Substance: RITONAVIR
     Indication: HIV infection
     Route: 064
  3. TIVICAY [Suspect]
     Active Substance: DOLUTEGRAVIR SODIUM
     Indication: HIV infection
     Dosage: 50 MILLIGRAM, QD
     Route: 064
     Dates: start: 20220125
  4. TIVICAY [Suspect]
     Active Substance: DOLUTEGRAVIR SODIUM
     Indication: HIV infection
     Route: 064
  5. COBICISTAT [Suspect]
     Active Substance: COBICISTAT
     Indication: Maternal exposure timing unspecified
     Route: 064
  6. REYATAZ [Suspect]
     Active Substance: ATAZANAVIR SULFATE
     Indication: HIV infection
     Dosage: 300 MILLIGRAM, QD
     Route: 064
     Dates: start: 20211229
  7. REYATAZ [Suspect]
     Active Substance: ATAZANAVIR SULFATE
     Indication: HIV infection
     Route: 064
  8. REYATAZ [Suspect]
     Active Substance: ATAZANAVIR SULFATE
     Indication: HIV infection
     Dosage: MATERNAL EXPOSURE DURING PREGNANCY: 300 MILLIGRAM, QD
     Route: 064
     Dates: start: 20211229
  9. ATAZANAVIR [Suspect]
     Active Substance: ATAZANAVIR
     Indication: Maternal exposure timing unspecified
     Route: 064
  10. ATAZANAVIR [Suspect]
     Active Substance: ATAZANAVIR
     Indication: Maternal exposure timing unspecified
     Dosage: MATERNAL EXPOSURE DURING PREGNANCY:: 300MG/QD
     Route: 064
     Dates: start: 20211229
  11. STRIBILD [Suspect]
     Active Substance: COBICISTAT\ELVITEGRAVIR\EMTRICITABINE\TENOFOVIR DISOPROXIL FUMARATE
     Indication: HIV infection
     Dosage: 1 DOSAGE FORM, QD, 1 TAB/CAPS
     Route: 064
     Dates: end: 20210718
  12. STRIBILD [Suspect]
     Active Substance: COBICISTAT\ELVITEGRAVIR\EMTRICITABINE\TENOFOVIR DISOPROXIL FUMARATE
     Indication: HIV infection
     Route: 064
  13. STRIBILD [Suspect]
     Active Substance: COBICISTAT\ELVITEGRAVIR\EMTRICITABINE\TENOFOVIR DISOPROXIL FUMARATE
     Indication: HIV infection
     Dosage: MATERNAL EXPOSURE DURING PREGNANCY: 1 DOSAGE FORM, QD, 1 TAB/CAPS
     Route: 064
     Dates: end: 20210718
  14. ELVITEGRAVIR [Suspect]
     Active Substance: ELVITEGRAVIR
     Indication: Maternal exposure timing unspecified
     Route: 064
  15. ELVITEGRAVIR [Suspect]
     Active Substance: ELVITEGRAVIR
     Indication: Maternal exposure timing unspecified
     Dosage: MATERNAL EXPOSURE DURING PREGNANCY : UNK (TABS/CAPS)
     Route: 064
     Dates: start: 20210718
  16. ISENTRESS [Suspect]
     Active Substance: RALTEGRAVIR POTASSIUM
     Indication: Maternal exposure timing unspecified
     Dosage: 800 MG
     Route: 064
     Dates: start: 20210719, end: 20211228
  17. ISENTRESS [Suspect]
     Active Substance: RALTEGRAVIR POTASSIUM
     Indication: Maternal exposure timing unspecified
     Dosage: MATERNAL EXPOSURE DURING PREGNANCY: 300MG QD
     Route: 064
     Dates: start: 20210719, end: 20211228
  18. EMTRICITABINE\TENOFOVIR DISOPROXIL FUMARATE [Suspect]
     Active Substance: EMTRICITABINE\TENOFOVIR DISOPROXIL FUMARATE
     Indication: HIV infection
     Dosage: 1 DOSAGE FORM, QD, 1 TAB/CAPS
     Route: 064
     Dates: start: 20210719
  19. EMTRICITABINE\TENOFOVIR DISOPROXIL FUMARATE [Suspect]
     Active Substance: EMTRICITABINE\TENOFOVIR DISOPROXIL FUMARATE
     Indication: HIV infection
     Route: 064
  20. EMTRICITABINE\TENOFOVIR DISOPROXIL FUMARATE [Suspect]
     Active Substance: EMTRICITABINE\TENOFOVIR DISOPROXIL FUMARATE
     Indication: HIV infection
     Dosage: MATERNAL EXPOSURE DURING PREGNANCY; 1 DOSAGE FORM QD 1 TAB/CAPS
     Route: 064
     Dates: start: 20210719
  21. DOVATO [Suspect]
     Active Substance: DOLUTEGRAVIR SODIUM\LAMIVUDINE
     Indication: Maternal exposure timing unspecified
     Route: 064
  22. DOVATO [Suspect]
     Active Substance: DOLUTEGRAVIR SODIUM\LAMIVUDINE
     Indication: Maternal exposure timing unspecified
     Dosage: MATERNAL EXPOSURE DURING PREGNANCY: 50MG QD
     Route: 064
     Dates: start: 20220125

REACTIONS (4)
  - Single functional kidney [Unknown]
  - Renal dysplasia [Unknown]
  - Renal aplasia [Unknown]
  - Foetal exposure during pregnancy [Unknown]

NARRATIVE: CASE EVENT DATE: 20220221
